FAERS Safety Report 9029653 (Version 2)
Quarter: 2013Q1

REPORT INFORMATION
  Report Type: Spontaneous
  Country: BR (occurrence: BR)
  Receive Date: 20130125
  Receipt Date: 20130226
  Transmission Date: 20140127
  Serious: Yes (Other)
  Sender: FDA-Public Use
  Company Number: PHHY2013BR006776

PATIENT
  Sex: Male

DRUGS (6)
  1. DIOVAN [Suspect]
     Indication: HYPERTENSION
     Dosage: 1 DF (320 MG), DAILY
     Route: 048
  2. LASIX [Concomitant]
     Indication: DYSURIA
     Dosage: 1 DF (40 MG) DAILY
     Route: 048
     Dates: start: 20120723
  3. APRESOLINA [Concomitant]
     Indication: BLOOD PRESSURE
     Dosage: 1 DF (50 MG) 12/12 HOURS
     Route: 048
  4. ABLOK [Concomitant]
     Dosage: 1 DF (50 MG) DAILY
     Route: 048
  5. OMEPRAZOLE [Concomitant]
     Indication: PROPHYLAXIS
     Dosage: 1 DF (20 MG) DAILY
     Route: 048
  6. HIDANTAL [Concomitant]
     Indication: SEDATIVE THERAPY
     Dosage: 0.5 DF (100 MG) DAILY
     Route: 048

REACTIONS (4)
  - Cerebrovascular accident [Recovering/Resolving]
  - Diabetes mellitus [Not Recovered/Not Resolved]
  - Gait disturbance [Not Recovered/Not Resolved]
  - Hiccups [Recovered/Resolved]
